FAERS Safety Report 19479912 (Version 2)
Quarter: 2021Q2

REPORT INFORMATION
  Report Type: Spontaneous
  Country: FR (occurrence: FR)
  Receive Date: 20210630
  Receipt Date: 20210630
  Transmission Date: 20210717
  Serious: Yes (Hospitalization)
  Sender: FDA-Public Use
  Company Number: FR-CANTON LABORATORIES, LLC-2113344

PATIENT
  Age: 63 Year
  Sex: Female

DRUGS (3)
  1. METOJECT [Suspect]
     Active Substance: METHOTREXATE SODIUM
     Route: 058
     Dates: start: 201901
  2. NAPROSYN [Suspect]
     Active Substance: NAPROXEN
     Indication: INFLAMMATORY PAIN
     Route: 048
     Dates: start: 20210415, end: 20210430
  3. KEVZARA [Concomitant]
     Active Substance: SARILUMAB
     Route: 058
     Dates: start: 201901

REACTIONS (3)
  - Stomatitis [Recovering/Resolving]
  - Pancytopenia [Recovering/Resolving]
  - Drug interaction [Recovering/Resolving]

NARRATIVE: CASE EVENT DATE: 20210415
